FAERS Safety Report 14943072 (Version 2)
Quarter: 2018Q2

REPORT INFORMATION
  Report Type: Report from Study
  Country: AU (occurrence: AU)
  Receive Date: 20180528
  Receipt Date: 20180530
  Transmission Date: 20180711
  Serious: No
  Sender: FDA-Public Use
  Company Number: AU-ROCHE-2128632

PATIENT
  Age: 49 Year
  Sex: Female

DRUGS (2)
  1. OCREVUS [Suspect]
     Active Substance: OCRELIZUMAB
     Indication: RELAPSING-REMITTING MULTIPLE SCLEROSIS
     Dosage: ONGOING- NO
     Route: 042
     Dates: start: 20180504, end: 20180504
  2. OCREVUS [Suspect]
     Active Substance: OCRELIZUMAB
     Dosage: ONGOING- NO
     Route: 042
     Dates: start: 20180518, end: 20180518

REACTIONS (7)
  - Diarrhoea [Unknown]
  - Contusion [Unknown]
  - Aggression [Unknown]
  - Insomnia [Unknown]
  - Nausea [Unknown]
  - Peripheral swelling [Unknown]
  - Lower respiratory tract infection [Unknown]

NARRATIVE: CASE EVENT DATE: 20180504
